FAERS Safety Report 6087692-9 (Version None)
Quarter: 2009Q1

REPORT INFORMATION
  Report Type: 
  Country: None (occurrence: None)
  Receive Date: 20090223
  Receipt Date: 20090211
  Transmission Date: 20090719
  Serious: Yes (Hospitalization)
  Sender: FDA-Public Use
  Company Number: GB-ROCHE-613875

PATIENT
  Age: 73 Year
  Sex: Male

DRUGS (6)
  1. CELLCEPT [Suspect]
     Indication: RENAL TRANSPLANT
     Route: 065
  2. CELLCEPT [Suspect]
     Route: 065
  3. PROGRAF [Suspect]
     Indication: RENAL TRANSPLANT
     Route: 065
  4. PROGRAF [Suspect]
     Dosage: DOSE REDUCED
     Route: 065
  5. COTRIMOXAZOLE [Concomitant]
  6. FLUCONAZOLE [Concomitant]
     Indication: ANTIFUNGAL PROPHYLAXIS

REACTIONS (1)
  - POLYOMAVIRUS-ASSOCIATED NEPHROPATHY [None]
